FAERS Safety Report 4960441-0 (Version None)
Quarter: 2006Q2

REPORT INFORMATION
  Report Type: 
  Country: None (occurrence: None)
  Receive Date: 20060403
  Receipt Date: 20060328
  Transmission Date: 20061013
  Serious: Yes (Hospitalization)
  Sender: FDA-Public Use
  Company Number: US-GLAXOSMITHKLINE-A0599363A

PATIENT
  Age: 35 Year
  Sex: Female

DRUGS (10)
  1. ADVAIR DISKUS 100/50 [Suspect]
     Indication: ASTHMA
     Dosage: 1PUFF TWICE PER DAY
     Route: 055
     Dates: start: 20050101
  2. ALBUTEROL [Suspect]
     Indication: ASTHMA
     Route: 055
  3. VENTOLIN [Suspect]
     Indication: ASTHMA
     Route: 055
  4. PREDNISONE [Suspect]
  5. ATROVENT [Concomitant]
  6. EPINEPHRINE [Concomitant]
  7. MULTI-VITAMIN [Concomitant]
  8. CALCIUM GLUCONATE [Concomitant]
  9. VITAMIN D [Concomitant]
  10. VITAMIN A [Concomitant]

REACTIONS (8)
  - ASTHMA [None]
  - BONE PAIN [None]
  - BONE SCAN ABNORMAL [None]
  - HAIR GROWTH ABNORMAL [None]
  - JOINT CREPITATION [None]
  - PAIN [None]
  - TOOTH FRACTURE [None]
  - WHEEZING [None]
